FAERS Safety Report 9005064 (Version 3)
Quarter: 2013Q1

REPORT INFORMATION
  Report Type: Report from Study
  Country: US (occurrence: US)
  Receive Date: 20130109
  Receipt Date: 20130315
  Transmission Date: 20140127
  Serious: Yes (Death, Hospitalization)
  Sender: FDA-Public Use
  Company Number: US-CELGENEUS-163-21880-13010473

PATIENT
  Age: 54 Year
  Sex: Female

DRUGS (21)
  1. REVLIMID [Suspect]
     Indication: ACUTE MYELOID LEUKAEMIA
     Dosage: 10 MILLIGRAM
     Route: 048
     Dates: start: 20121109, end: 20121122
  2. CELEXA [Concomitant]
     Indication: PRODUCT USED FOR UNKNOWN INDICATION
     Route: 065
  3. DEMEROL [Concomitant]
     Indication: PRODUCT USED FOR UNKNOWN INDICATION
     Route: 065
  4. LINEZOLID [Concomitant]
     Indication: ANTI-INFECTIVE THERAPY
     Dosage: 1200 MILLIGRAM
     Route: 041
     Dates: start: 20121218, end: 20130103
  5. IMMUNE GLOBULIN [Concomitant]
     Indication: PRODUCT USED FOR UNKNOWN INDICATION
     Dosage: 20 GRAM
     Route: 041
  6. VORICONAZOLE [Concomitant]
     Indication: ANTI-INFECTIVE THERAPY
     Dosage: 500 MILLIGRAM
     Route: 041
     Dates: start: 20121206, end: 20130103
  7. IMIPENEM CILASTATIN [Concomitant]
     Indication: PRODUCT USED FOR UNKNOWN INDICATION
     Dosage: 2000 MILLIGRAM
     Route: 041
  8. BACTRIM [Concomitant]
     Indication: PRODUCT USED FOR UNKNOWN INDICATION
     Route: 048
  9. TRYPSIN [Concomitant]
     Indication: PRODUCT USED FOR UNKNOWN INDICATION
     Dosage: 1 APPLICATION
     Route: 065
  10. NYSTATIN [Concomitant]
     Indication: PRODUCT USED FOR UNKNOWN INDICATION
     Dosage: 40 MILLILITER
     Route: 041
  11. SARNA [Concomitant]
     Indication: PRODUCT USED FOR UNKNOWN INDICATION
     Dosage: 1 APPLICATION
     Route: 065
  12. MAGNESIUM SULFATE [Concomitant]
     Indication: PRODUCT USED FOR UNKNOWN INDICATION
     Route: 041
  13. PANTOPRAZOLE [Concomitant]
     Indication: PRODUCT USED FOR UNKNOWN INDICATION
     Dosage: 40 MILLIGRAM
     Route: 041
  14. DUONEB [Concomitant]
     Indication: DYSPNOEA
     Dosage: 3/0.5MG
     Route: 065
  15. DUONEB [Concomitant]
     Dosage: 3/0.5MG
     Route: 065
  16. KCL [Concomitant]
     Indication: PRODUCT USED FOR UNKNOWN INDICATION
     Route: 041
  17. ACTIGALL [Concomitant]
     Indication: PRODUCT USED FOR UNKNOWN INDICATION
     Dosage: 900 MILLIGRAM
     Route: 048
  18. MICAFUNGIN [Concomitant]
     Indication: ANTI-INFECTIVE THERAPY
     Route: 065
     Dates: start: 20121102, end: 20121207
  19. ZOSYN [Concomitant]
     Indication: ANTI-INFECTIVE THERAPY
     Route: 065
     Dates: start: 20121130, end: 20121203
  20. ZOSYN [Concomitant]
     Route: 065
     Dates: start: 20121210, end: 20130103
  21. DAPTOMYCIN [Concomitant]
     Indication: ANTI-INFECTIVE THERAPY
     Route: 065
     Dates: start: 20121202, end: 20130103

REACTIONS (3)
  - Bacteraemia [Not Recovered/Not Resolved]
  - Acute respiratory distress syndrome [Fatal]
  - Aspergillus infection [Not Recovered/Not Resolved]
